FAERS Safety Report 8768553 (Version 2)
Quarter: 2013Q2

REPORT INFORMATION
  Report Type: Spontaneous
  Country: US (occurrence: US)
  Receive Date: 20120904
  Receipt Date: 20130404
  Transmission Date: 20140414
  Serious: No
  Sender: FDA-Public Use
  Company Number: US-AMGEN-USASP2012052142

PATIENT
  Age: 48 Year
  Sex: Female

DRUGS (4)
  1. ENBREL [Suspect]
     Indication: PSORIASIS
     Dosage: 50 MG, QWK
     Dates: start: 20120727, end: 201211
  2. ENBREL [Suspect]
     Indication: PSORIATIC ARTHROPATHY
  3. SIMPONI [Concomitant]
     Dosage: UNK
  4. REMICADE [Concomitant]
     Dosage: UNK
     Dates: start: 201301

REACTIONS (2)
  - Drug effect incomplete [Not Recovered/Not Resolved]
  - Psoriasis [Recovered/Resolved]
